FAERS Safety Report 23379440 (Version 4)
Quarter: 2024Q1

REPORT INFORMATION
  Report Type: Report from Study
  Country: FR (occurrence: FR)
  Receive Date: 20240108
  Receipt Date: 20240222
  Transmission Date: 20240410
  Serious: Yes (Death, Life-Threatening, Other)
  Sender: FDA-Public Use
  Company Number: FR-JAZZ PHARMACEUTICALS-2024-FR-000262

PATIENT

DRUGS (1)
  1. CANNABIDIOL [Suspect]
     Active Substance: CANNABIDIOL
     Indication: Partial seizures
     Dosage: 6.67 MILLIGRAM/KILOGRAM, QD
     Route: 048

REACTIONS (2)
  - Sudden unexplained death in epilepsy [Fatal]
  - Off label use [Unknown]

NARRATIVE: CASE EVENT DATE: 20231105
